FAERS Safety Report 6055794-9 (Version None)
Quarter: 2009Q1

REPORT INFORMATION
  Report Type: 
  Country: None (occurrence: None)
  Receive Date: 20090128
  Receipt Date: 20090122
  Transmission Date: 20090719
  Serious: Yes (Other)
  Sender: FDA-Public Use
  Company Number: JP-WATSON-2009-00339

PATIENT
  Sex: Female

DRUGS (2)
  1. RAPAFLO [Suspect]
     Indication: BLADDER OBSTRUCTION
     Dosage: 4 MG, BID
     Route: 048
     Dates: start: 20081212, end: 20081216
  2. ANTIHYPERTENSIVES [Suspect]
     Indication: HYPERTENSION
     Dosage: UNK
     Route: 065

REACTIONS (2)
  - DRUG INTERACTION [None]
  - VISUAL IMPAIRMENT [None]
